FAERS Safety Report 9848794 (Version 1)
Quarter: 2014Q1

REPORT INFORMATION
  Report Type: Spontaneous
  Country: FR (occurrence: FR)
  Receive Date: 20140128
  Receipt Date: 20140128
  Transmission Date: 20141002
  Serious: Yes (Other)
  Sender: FDA-Public Use
  Company Number: FR-JNJFOC-20140112055

PATIENT
  Age: 51 Year
  Sex: Female

DRUGS (1)
  1. XARELTO [Suspect]
     Indication: VENOUS THROMBOSIS
     Route: 048
     Dates: start: 20130209, end: 20130225

REACTIONS (1)
  - Abdominal pain [Recovered/Resolved]
